FAERS Safety Report 5042290-0 (Version None)
Quarter: 2006Q2

REPORT INFORMATION
  Report Type: 
  Country: None (occurrence: None)
  Receive Date: 20060627
  Receipt Date: 20060609
  Transmission Date: 20061013
  Serious: Yes (Other)
  Sender: FDA-Public Use
  Company Number: DK200603003884

PATIENT
  Age: 15 Year
  Sex: 0
  Weight: 53 kg

DRUGS (1)
  1. STRATTERA [Suspect]
     Indication: ATTENTION DEFICIT/HYPERACTIVITY DISORDER
     Dosage: 25 MG DAILY (1/D) ORAL
     Route: 048
     Dates: start: 20050616, end: 20060102

REACTIONS (3)
  - HYPERTHYROIDISM [None]
  - PALPITATIONS [None]
  - THYROIDITIS [None]
